FAERS Safety Report 4542815-5 (Version None)
Quarter: 2004Q4

REPORT INFORMATION
  Report Type: 
  Country: None (occurrence: None)
  Receive Date: 20041229
  Receipt Date: 20041221
  Transmission Date: 20050328
  Serious: Yes (Other)
  Sender: FDA-Public Use
  Company Number: USA-2004-0015675

PATIENT
  Age: 77 Year
  Sex: Female
  Weight: 68 kg

DRUGS (8)
  1. OXYCONTIN [Suspect]
     Indication: PAIN
     Dosage: 20 MG, Q12H
     Dates: start: 20040113
  2. PERCOCET (OXYCODONE HYDROCHLORIDE) CR, TABELT [Suspect]
     Indication: PAIN
     Dates: start: 20040113
  3. DILAUDID [Suspect]
     Indication: PAIN
     Dosage: PM
     Dates: start: 20040113
  4. DIOVAN ^CIBA -GEIGY^ (VALSARTAN) [Concomitant]
  5. LASIX [Concomitant]
  6. WARFARIN SODIUM [Concomitant]
  7. LEVOXYL [Concomitant]
  8. DETROL [Concomitant]

REACTIONS (8)
  - ABNORMAL BEHAVIOUR [None]
  - AGGRESSION [None]
  - ANAEMIA [None]
  - CARDIAC FAILURE CONGESTIVE [None]
  - DIABETES MELLITUS [None]
  - DIZZINESS [None]
  - PNEUMONIA [None]
  - SLEEP DISORDER [None]
